FAERS Safety Report 6531199-9 (Version None)
Quarter: 2010Q1

REPORT INFORMATION
  Report Type: 
  Country: None (occurrence: None)
  Receive Date: 20100108
  Receipt Date: 20100105
  Transmission Date: 20100710
  Serious: Yes (Other)
  Sender: FDA-Public Use
  Company Number: FR-ROCHE-677838

PATIENT
  Age: 37 Year
  Sex: Male

DRUGS (2)
  1. CELLCEPT [Suspect]
     Indication: RENAL TRANSPLANT
     Route: 065
     Dates: start: 20040101
  2. NEORAL [Concomitant]
     Dates: start: 20040101

REACTIONS (2)
  - HALLUCINATION, AUDITORY [None]
  - MEMORY IMPAIRMENT [None]
